FAERS Safety Report 8517293-1 (Version None)
Quarter: 2012Q3

REPORT INFORMATION
  Report Type: 
  Country: None (occurrence: None)
  Receive Date: 20120718
  Receipt Date: 20120712
  Transmission Date: 20120928
  Serious: Yes (Other)
  Sender: FDA-Public Use
  Company Number: US-PFIZER INC-2012169286

PATIENT
  Sex: Female

DRUGS (1)
  1. LIPITOR [Suspect]
     Dosage: UNK
     Dates: start: 19920101

REACTIONS (3)
  - ROAD TRAFFIC ACCIDENT [None]
  - CORONARY ARTERY OCCLUSION [None]
  - CARDIAC DISORDER [None]
